FAERS Safety Report 22265214 (Version 1)
Quarter: 2023Q2

REPORT INFORMATION
  Report Type: Spontaneous
  Country: CA (occurrence: CA)
  Receive Date: 20230428
  Receipt Date: 20230428
  Transmission Date: 20230721
  Serious: Yes (Other)
  Sender: FDA-Public Use
  Company Number: CA-PFIZER INC-202300144820

PATIENT
  Age: 72 Year
  Sex: Female
  Weight: 57.596 kg

DRUGS (5)
  1. METHOTREXATE SODIUM [Suspect]
     Active Substance: METHOTREXATE SODIUM
     Dosage: 25 MG, WEEKLY
     Route: 058
  2. DICLOFENAC [Concomitant]
     Active Substance: DICLOFENAC
     Indication: Swelling
     Dosage: 1 DF
  3. ERELZI [Concomitant]
     Active Substance: ETANERCEPT-SZZS
     Dosage: 1 DF
  4. ERELZI [Concomitant]
     Active Substance: ETANERCEPT-SZZS
     Dosage: 1 DF
     Dates: start: 20230402
  5. LYRICA [Concomitant]
     Active Substance: PREGABALIN
     Dosage: 1 DF

REACTIONS (6)
  - Fall [Unknown]
  - Traumatic intracranial haemorrhage [Unknown]
  - Concussion [Unknown]
  - Drug ineffective [Unknown]
  - Condition aggravated [Not Recovered/Not Resolved]
  - Synovial cyst [Not Recovered/Not Resolved]

NARRATIVE: CASE EVENT DATE: 20230418
